FAERS Safety Report 17054000 (Version 2)
Quarter: 2019Q4

REPORT INFORMATION
  Report Type: Spontaneous
  Country: CA (occurrence: CA)
  Receive Date: 20191120
  Receipt Date: 20191122
  Transmission Date: 20200122
  Serious: Yes (Other)
  Sender: FDA-Public Use
  Company Number: CA-PFIZER INC-2015262723

PATIENT
  Age: 64 Year
  Sex: Female

DRUGS (9)
  1. PREDNISONE. [Concomitant]
     Active Substance: PREDNISONE
     Dosage: UNK
  2. PREDNISONE. [Concomitant]
     Active Substance: PREDNISONE
     Dosage: DECREASED TO 2.5 MG EVERY 2 DAYS
  3. CORTISONE [Concomitant]
     Active Substance: CORTISONE
     Dosage: 2.5 MG, DAILY
     Dates: end: 201509
  4. CORTISONE [Concomitant]
     Active Substance: CORTISONE
     Dosage: 2.5 MG, DAILY
     Dates: start: 2015
  5. PNEUMOVAX 23 [Suspect]
     Active Substance: PNEUMOCOCCAL VACCINE, POLYVALENT 23
     Dates: start: 201512
  6. CORTISONE [Concomitant]
     Active Substance: CORTISONE
     Indication: RHEUMATOID ARTHRITIS
     Dosage: 10 MG, DAILY
  7. CORTISONE [Concomitant]
     Active Substance: CORTISONE
     Dosage: 10 MG, DAILY
     Dates: start: 20151104
  8. CORTISONE [Concomitant]
     Active Substance: CORTISONE
     Dosage: 5 MG, DAILY
  9. XELJANZ [Suspect]
     Active Substance: TOFACITINIB CITRATE
     Indication: RHEUMATOID ARTHRITIS
     Dosage: 5 MG, 2X/DAY
     Route: 048
     Dates: start: 20150710, end: 20160429

REACTIONS (11)
  - Condition aggravated [Not Recovered/Not Resolved]
  - Sinusitis [Not Recovered/Not Resolved]
  - Pneumonia [Unknown]
  - Cataract [Unknown]
  - Nasopharyngitis [Not Recovered/Not Resolved]
  - Rheumatoid arthritis [Not Recovered/Not Resolved]
  - Headache [Not Recovered/Not Resolved]
  - Bronchitis [Not Recovered/Not Resolved]
  - Drug ineffective [Unknown]
  - Malaise [Not Recovered/Not Resolved]
  - Nausea [Not Recovered/Not Resolved]

NARRATIVE: CASE EVENT DATE: 2015
